FAERS Safety Report 10047268 (Version 2)
Quarter: 2014Q2

REPORT INFORMATION
  Report Type: Spontaneous
  Country: US (occurrence: US)
  Receive Date: 20140331
  Receipt Date: 20140523
  Transmission Date: 20141212
  Serious: Yes (Other)
  Sender: FDA-Public Use
  Company Number: US-BAYER-2014-045789

PATIENT
  Age: 27 Year
  Sex: Female
  Weight: 110 kg

DRUGS (1)
  1. MIRENA [Suspect]
     Indication: CONTRACEPTION
     Dosage: 20 MCG/24HR, CONT
     Route: 015
     Dates: start: 200903

REACTIONS (6)
  - Embedded device [Not Recovered/Not Resolved]
  - Embedded device [Not Recovered/Not Resolved]
  - Device defective [Not Recovered/Not Resolved]
  - Complication of device removal [None]
  - Device breakage [None]
  - Device difficult to use [None]
